FAERS Safety Report 7960166-3 (Version None)
Quarter: 2011Q4

REPORT INFORMATION
  Report Type: 
  Country: None (occurrence: None)
  Receive Date: 20111206
  Receipt Date: 20111202
  Transmission Date: 20120403
  Serious: Yes (Death)
  Sender: FDA-Public Use
  Company Number: PHEH2011US010848

PATIENT
  Sex: Male
  Weight: 81.6 kg

DRUGS (7)
  1. GLEEVEC [Suspect]
     Indication: CHRONIC MYELOID LEUKAEMIA
     Dosage: 200 MG, DAILY
     Route: 048
     Dates: start: 20080901
  2. LANOXIN [Concomitant]
  3. PREVACID [Concomitant]
  4. VITAMIN-MINERAL COMPOUND TAB [Concomitant]
  5. TIAZAC [Concomitant]
  6. VALIUM [Concomitant]
  7. COUMADIN [Concomitant]

REACTIONS (1)
  - DEATH [None]
